FAERS Safety Report 9505875 (Version 1)
Quarter: 2013Q1

REPORT INFORMATION
  Report Type: Spontaneous
  Country: US (occurrence: None)
  Receive Date: 20130219
  Receipt Date: 20130219
  Transmission Date: 20140127
  Serious: Yes (Other)
  Sender: FDA-Public Use
  Company Number: 1207USA010461

PATIENT
  Age: 58 Year
  Sex: Female

DRUGS (2)
  1. ZOCOR (SIMVASTATIN) [Suspect]
  2. ORENCIA [Suspect]
     Route: 042

REACTIONS (3)
  - Liver function test abnormal [None]
  - Myopathy [None]
  - Malaise [None]
